FAERS Safety Report 22537837 (Version 4)
Quarter: 2024Q2

REPORT INFORMATION
  Report Type: Spontaneous
  Country: FR (occurrence: FR)
  Receive Date: 20230608
  Receipt Date: 20240405
  Transmission Date: 20240716
  Serious: Yes (Hospitalization, Other)
  Sender: FDA-Public Use
  Company Number: FR-009507513-2306FRA002484

PATIENT
  Age: 69 Year
  Sex: Male

DRUGS (14)
  1. PREVYMIS [Suspect]
     Active Substance: LETERMOVIR
     Dosage: 240 MILLIGRAMS DAILY
     Route: 048
     Dates: start: 20230423, end: 20230506
  2. PREVYMIS [Suspect]
     Active Substance: LETERMOVIR
     Dosage: 240 MILLIGRAM, QD
     Route: 042
     Dates: start: 20230507, end: 20230512
  3. CASPOFUNGIN ACETATE [Concomitant]
     Active Substance: CASPOFUNGIN ACETATE
     Dosage: 70 MILLIGRAM, QD
     Dates: start: 20230511
  4. CYCLOSPORINE [Concomitant]
     Active Substance: CYCLOSPORINE
     Dosage: UNK
     Dates: start: 20230419, end: 20230424
  5. TEICOPLANIN [Concomitant]
     Active Substance: TEICOPLANIN
     Dosage: 1 GRAM, QD
     Dates: start: 20230420, end: 20230504
  6. PIPERACILLIN SODIUM\TAZOBACTAM SODIUM [Concomitant]
     Active Substance: PIPERACILLIN SODIUM\TAZOBACTAM SODIUM
     Dosage: UNK
     Dates: start: 20230419, end: 20230427
  7. MEROPENEM [Concomitant]
     Active Substance: MEROPENEM
     Dosage: 2 GRAM, TID
     Route: 042
     Dates: start: 20230428, end: 20230512
  8. ENTECAVIR [Concomitant]
     Active Substance: ENTECAVIR
     Dosage: 0.5 MILLIGRAM, QD
     Dates: start: 20230419
  9. ISAVUCONAZOLE [Concomitant]
     Active Substance: ISAVUCONAZOLE
     Dosage: 200 MILLIGRAM, QD
     Dates: start: 20230419, end: 20230511
  10. TACROLIMUS [Concomitant]
     Active Substance: TACROLIMUS
     Dosage: UNK
     Dates: start: 20230425
  11. COLCHICINE [Concomitant]
     Active Substance: COLCHICINE
     Dosage: 0.5 TABLET
     Dates: start: 20230505, end: 20230508
  12. OXYCODONE [Concomitant]
     Active Substance: OXYCODONE\OXYCODONE HYDROCHLORIDE
     Dosage: UNK
     Dates: start: 20230501, end: 20230509
  13. NEFOPAM [Concomitant]
     Active Substance: NEFOPAM
     Dosage: UNK
     Dates: start: 20230419, end: 20230509
  14. ACYCLOVIR [Concomitant]
     Active Substance: ACYCLOVIR
     Dosage: 400 MILLIGRAM, QD
     Dates: start: 20230509, end: 20230512

REACTIONS (3)
  - Hepatic failure [Unknown]
  - Renal failure [Unknown]
  - Atrial fibrillation [Unknown]

NARRATIVE: CASE EVENT DATE: 20230101
